FAERS Safety Report 15103943 (Version 1)
Quarter: 2018Q3

REPORT INFORMATION
  Report Type: Report from Study
  Country: US (occurrence: US)
  Receive Date: 20180703
  Receipt Date: 20180703
  Transmission Date: 20181010
  Serious: Yes (Other)
  Sender: FDA-Public Use
  Company Number: US-GILEAD-2018-0348108

PATIENT
  Age: 73 Year
  Sex: Female

DRUGS (2)
  1. SOFOSBUVIR W/VELPATASVIR [Suspect]
     Active Substance: SOFOSBUVIR\VELPATASVIR
     Indication: CHRONIC HEPATITIS C
     Dosage: 1 DF, QD
     Route: 048
     Dates: start: 20180426
  2. OXYCODONE [Concomitant]
     Active Substance: OXYCODONE

REACTIONS (4)
  - Abdominal distension [Not Recovered/Not Resolved]
  - Hepatic cirrhosis [Not Recovered/Not Resolved]
  - Small cell lung cancer [Not Recovered/Not Resolved]
  - Feeding disorder [Not Recovered/Not Resolved]
